FAERS Safety Report 10231564 (Version 3)
Quarter: 2014Q3

REPORT INFORMATION
  Report Type: Report from Study
  Country: DE (occurrence: DE)
  Receive Date: 20140611
  Receipt Date: 20140716
  Transmission Date: 20150326
  Serious: Yes (Hospitalization)
  Sender: FDA-Public Use
  Company Number: DE-B.I. PHARMACEUTICALS,INC./RIDGEFIELD-2012-EU-04507DE

PATIENT
  Age: 55 Year
  Sex: Male
  Weight: 106 kg

DRUGS (16)
  1. CALCIUM [Concomitant]
     Active Substance: CALCIUM
     Indication: PROPHYLAXIS
     Dosage: 500 MG
     Route: 048
  2. VIGANTOLETTEN [Concomitant]
     Active Substance: CHOLECALCIFEROL
     Indication: OSTEOPOROSIS PROPHYLAXIS
     Dosage: 1000 MG
     Route: 048
  3. CLEXANE [Concomitant]
     Active Substance: ENOXAPARIN SODIUM
     Indication: VASCULAR COMPRESSION
     Dosage: 0.4 MG
     Route: 058
  4. L-THYROXIN [Concomitant]
     Active Substance: LEVOTHYROXINE SODIUM
     Indication: THYROID NEOPLASM
     Dosage: 75 MG
     Route: 048
     Dates: start: 20120713
  5. IBUPROFEN. [Concomitant]
     Active Substance: IBUPROFEN
     Dosage: 400 MG
     Route: 048
     Dates: start: 20120924
  6. MONOEMBOLEX [Concomitant]
     Active Substance: CERTOPARIN SODIUM
     Indication: VASCULAR COMPRESSION
  7. BIBF 1120 [Suspect]
     Active Substance: NINTEDANIB
     Dosage: 300 MG
     Route: 048
     Dates: start: 20120913
  8. PRADAXA [Suspect]
     Active Substance: DABIGATRAN ETEXILATE MESYLATE
     Indication: VASCULAR COMPRESSION
     Dosage: 150 MG
     Route: 048
     Dates: start: 20120813, end: 20120830
  9. DOCITON [Concomitant]
     Indication: HYPERTENSION
     Dosage: 10 MG
     Route: 048
  10. MONOEMBOLEX [Concomitant]
     Active Substance: CERTOPARIN SODIUM
     Indication: THROMBOSIS PROPHYLAXIS
     Dosage: 3000 U
     Route: 058
     Dates: start: 20120906
  11. URSOFALK [Concomitant]
     Active Substance: URSODIOL
     Indication: PROPHYLAXIS
     Dosage: 1500 MG
     Route: 048
  12. NOVALGIN [Concomitant]
     Active Substance: METAMIZOLE SODIUM
     Dosage: 500 MG
     Route: 048
  13. BIBF 1120 [Suspect]
     Active Substance: NINTEDANIB
     Indication: HEPATOCELLULAR CARCINOMA
     Dosage: 400 MG
     Route: 048
     Dates: start: 20120515, end: 20120831
  14. PANTOZOL [Concomitant]
     Active Substance: PANTOPRAZOLE SODIUM
     Indication: GASTROOESOPHAGEAL REFLUX PROPHYLAXIS
     Dosage: 40 MG
     Route: 048
  15. VOLTAREN RESINAT [Concomitant]
     Active Substance: DICLOFENAC
     Indication: PAIN PROPHYLAXIS
     Dosage: 291 MG
     Route: 048
     Dates: start: 20120906
  16. XARELTO [Suspect]
     Active Substance: RIVAROXABAN
     Indication: VASCULAR COMPRESSION
     Dosage: 15 MG
     Route: 048
     Dates: start: 20120515, end: 20120730

REACTIONS (11)
  - Blood bilirubin increased [Recovered/Resolved]
  - Fall [Recovered/Resolved]
  - Pain [Recovered/Resolved]
  - Clavicle fracture [Recovered/Resolved]
  - Impaired healing [Recovered/Resolved]
  - Aspartate aminotransferase increased [Recovered/Resolved]
  - Diarrhoea [Not Recovered/Not Resolved]
  - Postoperative wound infection [Recovered/Resolved]
  - Hepatic encephalopathy [Unknown]
  - Alanine aminotransferase increased [Recovered/Resolved]
  - Fatigue [Unknown]

NARRATIVE: CASE EVENT DATE: 20120529
